FAERS Safety Report 19419264 (Version 1)
Quarter: 2021Q2

REPORT INFORMATION
  Report Type: Spontaneous
  Country: IT (occurrence: IT)
  Receive Date: 20210615
  Receipt Date: 20210615
  Transmission Date: 20210717
  Serious: No
  Sender: FDA-Public Use
  Company Number: IT-LUPIN PHARMACEUTICALS INC.-2021-09060

PATIENT
  Age: 36 Year
  Sex: Female

DRUGS (2)
  1. TRIAMCINOLONE [Suspect]
     Active Substance: TRIAMCINOLONE
     Indication: CHOROIDAL NEOVASCULARISATION
     Dosage: 1 MILLILITER, TRANS?TENONS RETROBULBAR INJECTIONS
     Route: 065
  2. POVIDONE?IODINE. [Suspect]
     Active Substance: POVIDONE-IODINE
     Indication: CHOROIDAL NEOVASCULARISATION
     Dosage: UNK
     Route: 061

REACTIONS (1)
  - Maternal exposure during pregnancy [Unknown]
